FAERS Safety Report 16658239 (Version 1)
Quarter: 2019Q3

REPORT INFORMATION
  Report Type: Spontaneous
  Country: US (occurrence: US)
  Receive Date: 20190618
  Receipt Date: 20190618
  Transmission Date: 20191004
  Serious: Yes (Death)
  Sender: FDA-Public Use
  Company Number: None

PATIENT
  Age: 69 Year
  Sex: Female
  Weight: 71.67 kg

DRUGS (7)
  1. BENADRYL [Concomitant]
     Active Substance: DIPHENHYDRAMINE HYDROCHLORIDE
  2. CEPHALAXIN [Concomitant]
  3. OMEPRAZOLE. [Concomitant]
     Active Substance: OMEPRAZOLE
  4. BICALUTAMIDE 50 MG [Suspect]
     Active Substance: BICALUTAMIDE
     Indication: IMMUNE THROMBOCYTOPENIC PURPURA
     Route: 048
  5. PYRIDIUM [Concomitant]
     Active Substance: PHENAZOPYRIDINE
  6. LETROZOLE. [Concomitant]
     Active Substance: LETROZOLE
  7. IMITREX [Concomitant]
     Active Substance: SUMATRIPTAN SUCCINATE

REACTIONS (1)
  - Death [None]
